FAERS Safety Report 10416974 (Version 4)
Quarter: 2021Q1

REPORT INFORMATION
  Report Type: Spontaneous
  Country: US (occurrence: US)
  Receive Date: 20140828
  Receipt Date: 20210208
  Transmission Date: 20210419
  Serious: No
  Sender: FDA-Public Use
  Company Number: US-PFIZER INC-2014235753

PATIENT
  Age: 72 Year
  Sex: Female
  Weight: 77.1 kg

DRUGS (2)
  1. BOSULIF [Suspect]
     Active Substance: BOSUTINIB MONOHYDRATE
     Indication: CHRONIC MYELOID LEUKAEMIA
     Dosage: 100 MG, 3X/DAY
     Route: 048
     Dates: start: 20140808
  2. BOSULIF [Suspect]
     Active Substance: BOSUTINIB MONOHYDRATE
     Dosage: 200 MG, 1X/DAY
     Route: 048
     Dates: start: 20140801, end: 20140821

REACTIONS (4)
  - Urticaria [Unknown]
  - Rash [Unknown]
  - Alopecia [Unknown]
  - Skin lesion [Unknown]

NARRATIVE: CASE EVENT DATE: 201408
